FAERS Safety Report 22316877 (Version 2)
Quarter: 2023Q2

REPORT INFORMATION
  Report Type: Spontaneous
  Country: FR (occurrence: FR)
  Receive Date: 20230513
  Receipt Date: 20230518
  Transmission Date: 20230721
  Serious: Yes (Other)
  Sender: FDA-Public Use
  Company Number: None

PATIENT
  Age: 11 Year
  Sex: Male
  Weight: 31.7 kg

DRUGS (2)
  1. FILGRASTIM [Suspect]
     Active Substance: FILGRASTIM
     Indication: Chemotherapy cytokine prophylaxis
     Dosage: 0.6 ML (STRENGTH - 30 MU/0,5 ML)
     Route: 058
     Dates: start: 20230423, end: 20230423
  2. LENOGRASTIM [Suspect]
     Active Substance: LENOGRASTIM
     Indication: Chemotherapy cytokine prophylaxis
     Dosage: UNK (34) (33.6 MILLION U.I./1 ML)
     Route: 065

REACTIONS (3)
  - Hyperleukocytosis [Not Recovered/Not Resolved]
  - Product prescribing error [Recovered/Resolved]
  - Incorrect dose administered [Recovered/Resolved]

NARRATIVE: CASE EVENT DATE: 20230424
